FAERS Safety Report 6048824-1 (Version None)
Quarter: 2009Q1

REPORT INFORMATION
  Report Type: 
  Country: None (occurrence: None)
  Receive Date: 20090123
  Receipt Date: 20090115
  Transmission Date: 20090719
  Serious: Yes (Death, Life-Threatening, Hospitalization)
  Sender: FDA-Public Use
  Company Number: EG-MERCK-0901USA02835

PATIENT
  Age: 23 Year
  Sex: Female
  Weight: 50 kg

DRUGS (3)
  1. PRIMAXIN [Suspect]
     Indication: FEBRILE NEUTROPENIA
     Route: 042
     Dates: start: 20081231, end: 20090107
  2. PRIMAXIN [Suspect]
     Indication: LOWER RESPIRATORY TRACT INFECTION
     Route: 042
     Dates: start: 20081231, end: 20090107
  3. AMPHOTERICIN B [Concomitant]
     Indication: ANTIFUNGAL TREATMENT
     Route: 041
     Dates: start: 20090102, end: 20090107

REACTIONS (1)
  - CARDIAC ARREST [None]
